FAERS Safety Report 9709087 (Version 1)
Quarter: 2013Q4

REPORT INFORMATION
  Report Type: Spontaneous
  Country: US (occurrence: US)
  Receive Date: 20131125
  Receipt Date: 20131125
  Transmission Date: 20140711
  Serious: Yes (Hospitalization)
  Sender: FDA-Public Use
  Company Number: US-MYLANLABS-2013S1025963

PATIENT
  Age: 34 Year
  Sex: Male

DRUGS (2)
  1. DOXAZOSIN [Suspect]
     Dosage: OVER 100 TABLETS OF DOXAZOSIN 4MG AND PROPRANOLOL 10MG
     Route: 048
  2. PROPRANOLOL [Suspect]
     Dosage: OVER 100 TABLETS OF DOXAZOSIN 4MG AND PROPRANOLOL 10MG
     Route: 048

REACTIONS (3)
  - Circulatory collapse [Recovering/Resolving]
  - Overdose [Recovering/Resolving]
  - Renal failure acute [Recovering/Resolving]
